FAERS Safety Report 4555776-X (Version None)
Quarter: 2005Q1

REPORT INFORMATION
  Report Type: 
  Country: None (occurrence: None)
  Receive Date: 20050112
  Receipt Date: 20041006
  Transmission Date: 20050727
  Serious: Yes (Hospitalization)
  Sender: FDA-Public Use
  Company Number: 200420778BWH

PATIENT
  Age: 35 Year
  Sex: Female

DRUGS (1)
  1. CIPRO [Suspect]
     Dosage: ORAL
     Route: 048

REACTIONS (1)
  - SWELLING [None]
